FAERS Safety Report 14511829 (Version 1)
Quarter: 2018Q1

REPORT INFORMATION
  Report Type: Spontaneous
  Country: CN (occurrence: CN)
  Receive Date: 20180209
  Receipt Date: 20180209
  Transmission Date: 20180509
  Serious: Yes (Other)
  Sender: FDA-Public Use
  Company Number: CN-BAYER-2018-023519

PATIENT
  Age: 67 Year
  Sex: Female

DRUGS (2)
  1. IOPROMIDE [Suspect]
     Active Substance: IOPROMIDE
     Indication: ADRENAL MASS
  2. IOPROMIDE [Suspect]
     Active Substance: IOPROMIDE
     Indication: COMPUTERISED TOMOGRAM
     Dosage: 2 ML, ONCE
     Route: 042
     Dates: start: 20170412, end: 20170412

REACTIONS (3)
  - Anaphylactic shock [None]
  - Coronary artery stenosis [None]
  - Acute myocardial infarction [None]

NARRATIVE: CASE EVENT DATE: 20170412
